FAERS Safety Report 7501961-4 (Version None)
Quarter: 2011Q2

REPORT INFORMATION
  Report Type: 
  Country: None (occurrence: None)
  Receive Date: 20110523
  Receipt Date: 20110523
  Transmission Date: 20111010
  Serious: Yes (Hospitalization, Disabling, Other)
  Sender: FDA-Public Use
  Company Number: None

PATIENT
  Age: 63 Year
  Sex: Male
  Weight: 108.8633 kg

DRUGS (8)
  1. CITALOPRAM HYDROBROMIDE [Concomitant]
  2. FENOFIBRATE [Suspect]
     Indication: BLOOD CHOLESTEROL INCREASED
     Dosage: 200 MG FENOFIBRATE ONCE A DAY
     Dates: start: 20090901, end: 20100814
  3. AMLODIPINE [Concomitant]
  4. LISINOPRIL [Concomitant]
  5. COMBIVENT [Concomitant]
  6. SYMBICORT [Suspect]
  7. SIMVASTATIN [Suspect]
     Indication: BLOOD CHOLESTEROL INCREASED
     Dosage: 80 MG SIMVASTATIN ONCE A DAY
     Dates: start: 20090701, end: 20100817
  8. CLONINDINE [Concomitant]

REACTIONS (8)
  - CARDIAC FAILURE CONGESTIVE [None]
  - MOVEMENT DISORDER [None]
  - SWELLING FACE [None]
  - CARDIOMYOPATHY [None]
  - ATRIAL FIBRILLATION [None]
  - ASTHENIA [None]
  - OEDEMA PERIPHERAL [None]
  - DYSPNOEA [None]
